FAERS Safety Report 5875737-8 (Version None)
Quarter: 2008Q3

REPORT INFORMATION
  Report Type: 
  Country: None (occurrence: None)
  Receive Date: 20080905
  Receipt Date: 20080827
  Transmission Date: 20090109
  Serious: Yes (Other)
  Sender: FDA-Public Use
  Company Number: 2008AL009936

PATIENT
  Sex: Female

DRUGS (1)
  1. DIGOXIN [Suspect]
     Dates: start: 20020618

REACTIONS (12)
  - CONFUSIONAL STATE [None]
  - DETOXIFICATION [None]
  - DIZZINESS [None]
  - EYE ALLERGY [None]
  - EYE HAEMORRHAGE [None]
  - EYE INFECTION [None]
  - FEELING COLD [None]
  - INSOMNIA [None]
  - POST PROCEDURAL HAEMORRHAGE [None]
  - SKIN EXFOLIATION [None]
  - TONGUE BLACK HAIRY [None]
  - WEIGHT DECREASED [None]
